FAERS Safety Report 5782953-2 (Version None)
Quarter: 2008Q2

REPORT INFORMATION
  Report Type: 
  Country: None (occurrence: None)
  Receive Date: 20080619
  Receipt Date: 20080619
  Transmission Date: 20081010
  Serious: Yes (Life-Threatening, Hospitalization)
  Sender: FDA-Public Use
  Company Number: None

PATIENT
  Age: 51 Year
  Sex: Female
  Weight: 68.9467 kg

DRUGS (2)
  1. METHOTREXATE [Suspect]
     Indication: RHEUMATOID ARTHRITIS
     Dosage: 8 TABS PER WEEK BY MOUTH
     Route: 048
     Dates: start: 20070401, end: 20080401
  2. HUMIRA [Suspect]
     Indication: RHEUMATOID ARTHRITIS
     Dosage: 1 INJECTION EVERY OTHER WEEK INJECTION
     Dates: start: 20071001, end: 20080401

REACTIONS (10)
  - ASPIRATION [None]
  - CARDIAC FAILURE CONGESTIVE [None]
  - DYSPNOEA [None]
  - IMPAIRED WORK ABILITY [None]
  - LUNG DISORDER [None]
  - OEDEMA PERIPHERAL [None]
  - OESOPHAGEAL HAEMORRHAGE [None]
  - OXYGEN SATURATION DECREASED [None]
  - PNEUMONIA [None]
  - RASH ERYTHEMATOUS [None]
